FAERS Safety Report 8780556 (Version 5)
Quarter: 2012Q4

REPORT INFORMATION
  Report Type: 
  Country: US (occurrence: US)
  Receive Date: 20120913
  Receipt Date: 20121220
  Transmission Date: 20130627
  Serious: No
  Sender: FDA-Public Use
  Company Number: US-PFIZER INC-2012225019

PATIENT
  Age: 49 Year
  Sex: Female
  Weight: 48.07 kg

DRUGS (5)
  1. CHANTIX [Suspect]
     Indication: SMOKING CESSATION THERAPY
     Dosage: 0.5 mg, 1x/day (3 days)
     Route: 048
     Dates: start: 20120801, end: 201208
  2. CHANTIX [Suspect]
     Dosage: 0.5 mg, 2x/day (3 days)
     Route: 048
     Dates: start: 201208, end: 20120806
  3. CHANTIX [Suspect]
     Dosage: UNK
     Dates: start: 2012, end: 2012
  4. TRIAMCINOLONE ACETONIDE W/NYSTATIN [Suspect]
     Indication: BLISTERS
     Dosage: UNK, as needed
     Route: 061
     Dates: start: 201208
  5. OMEPRAZOLE [Concomitant]
     Dosage: 20 mg, daily

REACTIONS (16)
  - Hallucination, visual [Unknown]
  - Vision blurred [Unknown]
  - Eye movement disorder [Not Recovered/Not Resolved]
  - Hypoaesthesia [Unknown]
  - Rash [Not Recovered/Not Resolved]
  - Gait disturbance [Not Recovered/Not Resolved]
  - Dizziness [Not Recovered/Not Resolved]
  - Muscle spasms [Not Recovered/Not Resolved]
  - Blister [Not Recovered/Not Resolved]
  - Erythema [Not Recovered/Not Resolved]
  - Alopecia [Not Recovered/Not Resolved]
  - Feeling abnormal [Not Recovered/Not Resolved]
  - Stress [Unknown]
  - Skin mass [Unknown]
  - Skin lesion [Unknown]
  - Pruritus [Unknown]
